FAERS Safety Report 23737471 (Version 4)
Quarter: 2025Q1

REPORT INFORMATION
  Report Type: Report from Study
  Country: US (occurrence: US)
  Receive Date: 20240412
  Receipt Date: 20250115
  Transmission Date: 20250408
  Serious: Yes (Hospitalization)
  Sender: pharmaAND
  Company Number: US-Pharmaand-2024000234

PATIENT
  Sex: Male

DRUGS (2)
  1. RUBRACA [Suspect]
     Active Substance: RUCAPARIB CAMSYLATE
     Indication: Prostate cancer
     Dosage: 600 MG TWICE DAILY
     Route: 048
     Dates: start: 202403
  2. RUBRACA [Suspect]
     Active Substance: RUCAPARIB CAMSYLATE
     Dosage: 500 MG EVERY 12 HOURS
     Route: 048

REACTIONS (3)
  - Blood calcium increased [Recovered/Resolved]
  - Blood creatine increased [Recovered/Resolved]
  - Incorrect dose administered [Recovered/Resolved]
